APPROVED DRUG PRODUCT: QUETIAPINE FUMARATE
Active Ingredient: QUETIAPINE FUMARATE
Strength: EQ 400MG BASE
Dosage Form/Route: TABLET;ORAL
Application: A201762 | Product #007
Applicant: ACTAVIS GROUP PTC EHF
Approved: Feb 27, 2013 | RLD: No | RS: No | Type: DISCN